FAERS Safety Report 8914098 (Version 1)
Quarter: 2012Q4

REPORT INFORMATION
  Report Type: Spontaneous
  Country: US (occurrence: None)
  Receive Date: 20121115
  Receipt Date: 20121115
  Transmission Date: 20130627
  Serious: Yes (Hospitalization)
  Sender: FDA-Public Use
  Company Number: None

PATIENT
  Age: 87 Year
  Sex: Female

DRUGS (1)
  1. PRADAXA [Suspect]
     Indication: AFIB
     Route: 051
     Dates: start: 20121112, end: 20121112

REACTIONS (3)
  - Mallory-Weiss syndrome [None]
  - Faeces discoloured [None]
  - Haematemesis [None]
